FAERS Safety Report 6075490-1 (Version None)
Quarter: 2009Q1

REPORT INFORMATION
  Report Type: 
  Country: None (occurrence: None)
  Receive Date: 20090212
  Receipt Date: 20090204
  Transmission Date: 20090719
  Serious: Yes (Other)
  Sender: FDA-Public Use
  Company Number: B0558361A

PATIENT
  Age: 8 Year
  Sex: Female

DRUGS (10)
  1. PIRITON [Suspect]
     Indication: SINUS DISORDER
     Route: 065
  2. FLIXONASE [Suspect]
     Indication: SINUS DISORDER
     Route: 045
  3. ANTIBIOTICS [Suspect]
     Indication: SINUS DISORDER
     Route: 065
  4. ETANERCEPT [Suspect]
     Indication: DRUG USE FOR UNKNOWN INDICATION
     Dosage: 10MG TWO TIMES PER WEEK
     Route: 058
     Dates: start: 20070130
  5. METHOTREXATE [Concomitant]
  6. PREDNISOLONE [Concomitant]
     Route: 048
     Dates: start: 20070301
  7. AMOXICILLIN [Concomitant]
     Route: 048
     Dates: start: 20070301, end: 20070305
  8. LORATADINE [Concomitant]
     Indication: INJECTION SITE REACTION
     Route: 048
     Dates: start: 20070301
  9. IBUPROFEN TABLETS [Concomitant]
     Route: 048
     Dates: start: 20070301
  10. PENICILLIN [Concomitant]
     Dates: start: 20070301

REACTIONS (4)
  - ARTHRITIS [None]
  - DIZZINESS [None]
  - DRUG INEFFECTIVE [None]
  - SINUS DISORDER [None]
